FAERS Safety Report 12607421 (Version 2)
Quarter: 2016Q3

REPORT INFORMATION
  Report Type: Spontaneous
  Country: US (occurrence: US)
  Receive Date: 20160729
  Receipt Date: 20160803
  Transmission Date: 20161109
  Serious: Yes (Congenital Anomaly)
  Sender: FDA-Public Use
  Company Number: US-PFIZER INC-2016366850

PATIENT
  Sex: Male
  Weight: 2.83 kg

DRUGS (1)
  1. CHANTIX [Suspect]
     Active Substance: VARENICLINE TARTRATE
     Indication: SMOKING CESSATION THERAPY
     Dosage: UNK
     Route: 064
     Dates: start: 2010, end: 2010

REACTIONS (2)
  - Neonatal disorder [Unknown]
  - Maternal exposure during pregnancy [Unknown]
